FAERS Safety Report 4578226-6 (Version None)
Quarter: 2005Q1

REPORT INFORMATION
  Report Type: 
  Country: None (occurrence: None)
  Receive Date: 20050209
  Receipt Date: 20050126
  Transmission Date: 20050727
  Serious: Yes (Death)
  Sender: FDA-Public Use
  Company Number: 2004AL000580

PATIENT
  Age: 20 Year
  Sex: Male

DRUGS (3)
  1. KADIAN [Suspect]
  2. ALPRAZOLAM [Suspect]
  3. OXYCODONE [Suspect]
     Dosage: INH
     Route: 055

REACTIONS (4)
  - DEPRESSED LEVEL OF CONSCIOUSNESS [None]
  - DRUG ABUSER [None]
  - MEDICATION ERROR [None]
  - MULTIPLE DRUG OVERDOSE [None]
